FAERS Safety Report 5808352-2 (Version None)
Quarter: 2008Q3

REPORT INFORMATION
  Report Type: 
  Country: None (occurrence: None)
  Receive Date: 20080714
  Receipt Date: 20080630
  Transmission Date: 20090109
  Serious: Yes (Other)
  Sender: FDA-Public Use
  Company Number: PHHY2008FR12900

PATIENT
  Sex: Female

DRUGS (9)
  1. ZOLEDRONIC ACID [Suspect]
     Dosage: UNK
     Dates: start: 20070907, end: 20070907
  2. MABTHERA [Interacting]
     Indication: RHEUMATOID ARTHRITIS
     Dosage: 1 GRAM
     Route: 042
     Dates: start: 20071003, end: 20071003
  3. MABTHERA [Interacting]
     Dosage: 1 G PER DAY
     Route: 042
     Dates: start: 20071017, end: 20071017
  4. FORLAX [Concomitant]
  5. GAVISCON [Concomitant]
  6. PRIMPERAN TAB [Concomitant]
  7. STABLON [Concomitant]
  8. LORAZEPAM [Concomitant]
  9. CORTANCYL [Concomitant]

REACTIONS (2)
  - DRUG INTERACTION [None]
  - THROMBOCYTOPENIA [None]
